FAERS Safety Report 4624990-7 (Version None)
Quarter: 2005Q2

REPORT INFORMATION
  Report Type: 
  Country: None (occurrence: None)
  Receive Date: 20050401
  Receipt Date: 20050321
  Transmission Date: 20051028
  Serious: Yes (Other)
  Sender: FDA-Public Use
  Company Number: GB-JNJFOC-20050305375

PATIENT
  Age: 40 Year
  Sex: Female

DRUGS (8)
  1. TOPIRAMATE [Suspect]
     Route: 049
     Dates: start: 20040210
  2. TOPIRAMATE [Suspect]
     Indication: EPILEPSY
     Route: 049
     Dates: start: 20040210
  3. VALPROATE SODIUM [Concomitant]
     Indication: EPILEPSY
     Route: 049
  4. HORMONIN [Concomitant]
     Route: 049
  5. HORMONIN [Concomitant]
     Route: 049
  6. HORMONIN [Concomitant]
     Indication: HORMONE REPLACEMENT THERAPY
     Route: 049
  7. CO-CODAMOL [Concomitant]
     Route: 049
  8. CO-CODAMOL [Concomitant]
     Indication: PHARYNGOLARYNGEAL PAIN
     Dosage: 8/500, 1-2 QDS 4 HOURLY
     Route: 049

REACTIONS (1)
  - TUNNEL VISION [None]
